FAERS Safety Report 5482878-6 (Version None)
Quarter: 2007Q4

REPORT INFORMATION
  Report Type: 
  Country: None (occurrence: None)
  Receive Date: 20071011
  Receipt Date: 20071002
  Transmission Date: 20080405
  Serious: Yes (Other)
  Sender: FDA-Public Use
  Company Number: US-PFIZER INC-2007082786

PATIENT
  Sex: Female
  Weight: 129.7 kg

DRUGS (5)
  1. LIPITOR [Suspect]
     Indication: RENAL DISORDER
     Dates: start: 20070701, end: 20070906
  2. ALLOPURINOL [Concomitant]
     Indication: RENAL DISORDER
  3. LASIX [Concomitant]
  4. UROCIT-K [Concomitant]
     Indication: RENAL DISORDER
  5. CEFTIN [Concomitant]

REACTIONS (8)
  - ABNORMAL FAECES [None]
  - CONTUSION [None]
  - DRUG DISPENSING ERROR [None]
  - FEELING ABNORMAL [None]
  - MALAISE [None]
  - MYALGIA [None]
  - PRURITUS [None]
  - WALKING AID USER [None]
